FAERS Safety Report 11430683 (Version 1)
Quarter: 2015Q3

REPORT INFORMATION
  Report Type: Spontaneous
  Country: US (occurrence: US)
  Receive Date: 20150828
  Receipt Date: 20150828
  Transmission Date: 20151125
  Serious: No
  Sender: FDA-Public Use
  Company Number: US-ROCHE-1224137

PATIENT
  Age: 55 Year
  Sex: Male
  Weight: 70.36 kg

DRUGS (2)
  1. PEGASYS [Suspect]
     Active Substance: PEGINTERFERON ALFA-2A
     Indication: CHRONIC HEPATITIS C
     Dosage: PROCLICK
     Route: 058
     Dates: start: 20130503
  2. RIBAVIRIN. [Suspect]
     Active Substance: RIBAVIRIN
     Indication: CHRONIC HEPATITIS C
     Dosage: DIVIDED DOSES 600/600
     Route: 065
     Dates: start: 20130503

REACTIONS (4)
  - Arthralgia [Unknown]
  - Dry skin [Unknown]
  - Body temperature increased [Unknown]
  - Myalgia [Unknown]

NARRATIVE: CASE EVENT DATE: 20130513
